FAERS Safety Report 5974965-0 (Version None)
Quarter: 2008Q4

REPORT INFORMATION
  Report Type: 
  Country: None (occurrence: None)
  Receive Date: 20081202
  Receipt Date: 20081118
  Transmission Date: 20090506
  Serious: Yes (Life-Threatening, Hospitalization, Other)
  Sender: FDA-Public Use
  Company Number: JP-PFIZER INC-2008069840

PATIENT
  Sex: Male

DRUGS (10)
  1. MIGLITOL TABLET [Suspect]
     Indication: TYPE 2 DIABETES MELLITUS
     Dosage: DAILY DOSE:150MG
     Route: 048
     Dates: end: 20080807
  2. DORNER [Concomitant]
     Route: 048
  3. ANPLAG [Concomitant]
     Route: 048
  4. VALSARTAN [Concomitant]
     Route: 048
  5. TAKEPRON [Concomitant]
     Route: 048
  6. URINORM [Concomitant]
     Route: 048
  7. ITOROL [Concomitant]
     Route: 048
  8. TORSEMIDE [Concomitant]
     Route: 048
  9. DIGOXIN [Concomitant]
     Route: 048
  10. NOVOLIN R [Concomitant]
     Route: 058

REACTIONS (2)
  - ACIDOSIS [None]
  - BLOOD CREATININE INCREASED [None]
